FAERS Safety Report 9371944 (Version 1)
Quarter: 2013Q2

REPORT INFORMATION
  Report Type: Spontaneous
  Country: US (occurrence: US)
  Receive Date: 20130627
  Receipt Date: 20130627
  Transmission Date: 20140414
  Serious: Yes (Death, Other)
  Sender: FDA-Public Use
  Company Number: US-PFIZER INC-2013189659

PATIENT
  Age: 53 Year
  Sex: Male

DRUGS (1)
  1. VFEND [Suspect]
     Indication: PNEUMONIA
     Dosage: 200 MG, 2X/DAY
     Dates: start: 20120913

REACTIONS (2)
  - Procedural complication [Fatal]
  - Lower respiratory tract infection fungal [Unknown]
